FAERS Safety Report 15006933 (Version 2)
Quarter: 2019Q2

REPORT INFORMATION
  Report Type: Report from Study
  Country: None (occurrence: US)
  Receive Date: 20180613
  Receipt Date: 20190617
  Transmission Date: 20190711
  Serious: No
  Sender: FDA-Public Use
  Company Number: US-US WORLDMEDS, LLC-USW201804-000634

PATIENT
  Age: 77 Year
  Sex: Female

DRUGS (13)
  1. APOKYN [Suspect]
     Active Substance: APOMORPHINE HYDROCHLORIDE
     Route: 058
     Dates: start: 20180519
  2. LEVOTHYROXINE. [Concomitant]
     Active Substance: LEVOTHYROXINE
  3. APOKYN [Suspect]
     Active Substance: APOMORPHINE HYDROCHLORIDE
     Indication: PARKINSON^S DISEASE
     Route: 058
     Dates: start: 20180419
  4. CARBIDOPA/LEVODOPA [Concomitant]
     Active Substance: CARBIDOPA\LEVODOPA
  5. CLARITIN [Concomitant]
     Active Substance: LORATADINE
  6. SYNTHROID [Concomitant]
     Active Substance: LEVOTHYROXINE SODIUM
  7. LOSARTAN. [Concomitant]
     Active Substance: LOSARTAN
  8. TIGAN [Concomitant]
     Active Substance: TRIMETHOBENZAMIDE HYDROCHLORIDE
     Dates: start: 20180416, end: 20180419
  9. ROPINIROLE ER [Concomitant]
     Active Substance: ROPINIROLE
     Indication: PARKINSON^S DISEASE
  10. SEROQUEL [Concomitant]
     Active Substance: QUETIAPINE FUMARATE
  11. TRAMADOL. [Concomitant]
     Active Substance: TRAMADOL
  12. GABAPENTIN. [Concomitant]
     Active Substance: GABAPENTIN
  13. COMTAN [Concomitant]
     Active Substance: ENTACAPONE

REACTIONS (2)
  - Yawning [Recovered/Resolved]
  - Injection site rash [Recovering/Resolving]

NARRATIVE: CASE EVENT DATE: 20180419
